FAERS Safety Report 25060492 (Version 3)
Quarter: 2025Q1

REPORT INFORMATION
  Report Type: Report from Study
  Country: US (occurrence: US)
  Receive Date: 20250310
  Receipt Date: 20250331
  Transmission Date: 20250409
  Serious: Yes (Hospitalization)
  Sender: PFIZER
  Company Number: US-PFIZER INC-PV202500027469

PATIENT
  Age: 57 Year
  Sex: Female
  Weight: 84.3 kg

DRUGS (12)
  1. INVESTIGATIONAL PRODUCT [Suspect]
     Active Substance: INVESTIGATIONAL PRODUCT
     Indication: HER2 positive breast cancer
     Dosage: BID, DAYS 1-21, TOTAL DOSE ADMINISTERED THIS COURSE (DOSE): 4200 MG
     Route: 048
     Dates: start: 20250122
  2. TUCATINIB [Suspect]
     Active Substance: TUCATINIB
     Indication: HER2 positive breast cancer
     Dosage: BID, DAYS 1-21, TOTAL DOSE ADMINISTERED THIS COURSE (DOSE): 4200 MG
     Route: 048
     Dates: start: 20250122
  3. ADO-TRASTUZUMAB EMTANSINE [Suspect]
     Active Substance: ADO-TRASTUZUMAB EMTANSINE
     Indication: HER2 positive breast cancer
     Route: 042
     Dates: start: 20250122, end: 20250212
  4. LEVOTHYROXINE SODIUM [Suspect]
     Active Substance: LEVOTHYROXINE SODIUM
  5. LORAZEPAM [Suspect]
     Active Substance: LORAZEPAM
  6. OLANZAPINE [Suspect]
     Active Substance: OLANZAPINE
  7. LOMOTIL [Concomitant]
     Active Substance: ATROPINE SULFATE\DIPHENOXYLATE HYDROCHLORIDE
  8. ONDANSETRON [Concomitant]
     Active Substance: ONDANSETRON
  9. CITALOPRAM [Concomitant]
     Active Substance: CITALOPRAM
  10. COMPAZINE [Concomitant]
     Active Substance: PROCHLORPERAZINE MALEATE
  11. GABAPENTIN [Concomitant]
     Active Substance: GABAPENTIN
  12. HYOSCYAMINE [Concomitant]
     Active Substance: HYOSCYAMINE

REACTIONS (1)
  - Personality change [Recovered/Resolved with Sequelae]

NARRATIVE: CASE EVENT DATE: 20250303
